FAERS Safety Report 15879256 (Version 1)
Quarter: 2019Q1

REPORT INFORMATION
  Report Type: Spontaneous
  Country: US (occurrence: US)
  Receive Date: 20190128
  Receipt Date: 20190128
  Transmission Date: 20190417
  Serious: No
  Sender: FDA-Public Use
  Company Number: US-MYLANLABS-2019M1003557

PATIENT
  Age: 73 Year
  Sex: Female

DRUGS (1)
  1. TEMAZEPAM CAPSULES USP [Suspect]
     Active Substance: TEMAZEPAM
     Indication: INSOMNIA
     Dosage: UNK AT NIGHT, PRN

REACTIONS (2)
  - Drug effect decreased [Not Recovered/Not Resolved]
  - Incorrect product administration duration [Not Recovered/Not Resolved]
